FAERS Safety Report 7693139-9 (Version None)
Quarter: 2011Q3

REPORT INFORMATION
  Report Type: 
  Country: None (occurrence: None)
  Receive Date: 20110819
  Receipt Date: 20110817
  Transmission Date: 20111222
  Serious: Yes (Hospitalization)
  Sender: FDA-Public Use
  Company Number: CH-PFIZER INC-2011189039

PATIENT
  Age: 59 Year
  Sex: Male

DRUGS (9)
  1. CALCORT [Concomitant]
     Dosage: ALTERNATING 15 MG AND 22.5 MG, FREQUENCY UNKNOWN
     Route: 048
  2. PANTOPRAZOLE [Concomitant]
     Dosage: 40 MG, 1X/DAY
     Route: 048
  3. SULFASALAZINE [Suspect]
     Dosage: 1 G, 2X/DAY
     Route: 048
     Dates: start: 20110301, end: 20110415
  4. HYGROTON [Concomitant]
     Dosage: 50 MG, 1X/DAY
     Route: 048
  5. INDOMETACIN RETARD HELVEPHARM [Concomitant]
     Dosage: 75 MG, 2X/DAY
     Route: 048
  6. POTASSIUM CHLORIDE [Concomitant]
     Dosage: 16 MMOL, 3X/DAY
     Route: 048
  7. FRAGMIN [Concomitant]
     Dosage: 5000 IU, 1X/DAY
     Route: 058
  8. PIPERACILLIN AND TAZOBACTAM [Suspect]
     Indication: PNEUMONIA
     Dosage: 4.5 G, 3X/DAY
     Route: 041
     Dates: start: 20110412, end: 20110415
  9. CALCIMAGON-D3 [Concomitant]
     Dosage: 1 DF, 2X/DAY
     Route: 048

REACTIONS (8)
  - HEADACHE [None]
  - ASPARTATE AMINOTRANSFERASE INCREASED [None]
  - PYREXIA [None]
  - BLOOD ALKALINE PHOSPHATASE INCREASED [None]
  - GAMMA-GLUTAMYLTRANSFERASE INCREASED [None]
  - HEPATIC FUNCTION ABNORMAL [None]
  - ALANINE AMINOTRANSFERASE INCREASED [None]
  - CHILLS [None]
